FAERS Safety Report 21455370 (Version 5)
Quarter: 2023Q2

REPORT INFORMATION
  Report Type: Other
  Country: BE (occurrence: None)
  Receive Date: 20221014
  Receipt Date: 20230618
  Transmission Date: 20230721
  Serious: Yes (Other)
  Sender: FDA-Public Use
  Company Number: BE-ROCHE-3162574

PATIENT
  Age: 28 Year
  Sex: Male
  Weight: 97 kg

DRUGS (2)
  1. OCRELIZUMAB [Suspect]
     Active Substance: OCRELIZUMAB
     Indication: Relapsing-remitting multiple sclerosis
     Dosage: DOSE LAST STUDY DRUG ADMIN PRIOR AE 300 MG?DOSE LAST STUDY DRUG ADMIN PRIOR SAE 300 MG?START DATE OF
     Route: 042
     Dates: start: 20200717
  2. OCRELIZUMAB [Suspect]
     Active Substance: OCRELIZUMAB
     Dosage: NEXT DOSE: 04/AUG/2021, 09/FEB/2022, 31/AUG/2022, 31/MAR/2023.
     Route: 042
     Dates: start: 20210127, end: 20210127

REACTIONS (2)
  - Cholelithiasis [Recovered/Resolved]
  - Procedural pain [Recovered/Resolved]

NARRATIVE: CASE EVENT DATE: 20201111
